FAERS Safety Report 4543831-X (Version None)
Quarter: 2005Q1

REPORT INFORMATION
  Report Type: 
  Country: None (occurrence: None)
  Receive Date: 20050103
  Receipt Date: 20030519
  Transmission Date: 20050727
  Serious: Yes (Hospitalization)
  Sender: FDA-Public Use
  Company Number: GXKR2003GB00543

PATIENT
  Age: 83 Year
  Sex: Male

DRUGS (6)
  1. INDOMETHACIN [Suspect]
     Indication: GOUT
     Dosage: 50 MG, TID, ORAL
     Route: 048
     Dates: start: 20030307, end: 20030429
  2. BUMETANIDE [Suspect]
     Indication: CARDIAC FAILURE CONGESTIVE
     Dosage: 2 MG OM/1 MG MIDDAY, ORAL
     Route: 048
     Dates: end: 20030429
  3. LANSOPRAZOLE [Concomitant]
  4. AMIODARONE (AMIODARONE) [Concomitant]
  5. CLOPIDOGREL (CLOPIDOGREL) [Concomitant]
  6. CALCICHEW D3 (CALCIUM CARBONATE, COLECALCIFEROL) [Concomitant]

REACTIONS (3)
  - BLOOD CREATININE INCREASED [None]
  - CONDITION AGGRAVATED [None]
  - GOUT [None]
